FAERS Safety Report 11131475 (Version 1)
Quarter: 2015Q2

REPORT INFORMATION
  Report Type: Spontaneous
  Country: US (occurrence: US)
  Receive Date: 20150522
  Receipt Date: 20150522
  Transmission Date: 20150821
  Serious: No
  Sender: FDA-Public Use
  Company Number: US-MALLINCKRODT-QSC-2014-0369

PATIENT
  Age: 51 Year
  Sex: Female

DRUGS (2)
  1. BUMEX [Suspect]
     Active Substance: BUMETANIDE
     Dosage: UNK
     Dates: end: 201406
  2. H.P. ACTHAR [Suspect]
     Active Substance: CORTICOTROPIN
     Indication: FOCAL SEGMENTAL GLOMERULOSCLEROSIS
     Dosage: 80 UNITS, BIW
     Route: 058
     Dates: start: 20140331

REACTIONS (1)
  - Heart rate increased [Recovering/Resolving]

NARRATIVE: CASE EVENT DATE: 201406
